FAERS Safety Report 5955795-2 (Version None)
Quarter: 2008Q4

REPORT INFORMATION
  Report Type: 
  Country: None (occurrence: None)
  Receive Date: 20081117
  Receipt Date: 20081112
  Transmission Date: 20090506
  Serious: Yes (Hospitalization)
  Sender: FDA-Public Use
  Company Number: SE-B.I. PHARMACEUTICALS,INC./RIDGEFIELD-2008-SW-00296SW

PATIENT
  Sex: Male

DRUGS (12)
  1. PERSANTIN [Suspect]
     Indication: CEREBRAL THROMBOSIS
     Dates: end: 20080824
  2. REMINYL [Suspect]
     Indication: DEMENTIA ALZHEIMER'S TYPE
     Dosage: 16MG
     Route: 048
  3. SERTRALINE [Suspect]
     Indication: DEPRESSION
     Dosage: 50MG
     Route: 048
  4. TROMBYL [Suspect]
     Indication: CEREBRAL THROMBOSIS
     Dates: end: 20080824
  5. XALATAN [Concomitant]
     Dosage: STRENGTH: 50 MIKROGRAM/ML
  6. SIMVASTATIN [Concomitant]
  7. ZOPIKLON [Concomitant]
  8. COSOPT [Concomitant]
  9. FOLACIN [Concomitant]
  10. BETOLVEX [Concomitant]
  11. PILOKARPIN [Concomitant]
     Dosage: SINGLE-DOSE CONTAINER 4 %
  12. METOPROLOL TARTRATE [Concomitant]

REACTIONS (4)
  - CARDIOVASCULAR INSUFFICIENCY [None]
  - GASTRIC ULCER HAEMORRHAGE [None]
  - MALAISE [None]
  - MELAENA [None]
